FAERS Safety Report 11899299 (Version 1)
Quarter: 2016Q1

REPORT INFORMATION
  Report Type: Spontaneous
  Country: US (occurrence: US)
  Receive Date: 20160108
  Receipt Date: 20160108
  Transmission Date: 20160526
  Serious: No
  Sender: FDA-Public Use
  Company Number: US-SA-2015SA151067

PATIENT
  Age: 36 Year
  Sex: Female

DRUGS (4)
  1. AFREZZA [Suspect]
     Active Substance: INSULIN HUMAN
     Indication: TYPE 1 DIABETES MELLITUS
     Dosage: DOSE:4 UNIT(S)
     Route: 065
  2. AFREZZA [Suspect]
     Active Substance: INSULIN HUMAN
     Indication: TYPE 1 DIABETES MELLITUS
     Dosage: DOSE:8 UNIT(S)
     Route: 065
     Dates: start: 20150923
  3. HUMALOG [Concomitant]
     Active Substance: INSULIN LISPRO
     Dosage: DOSE :  1/3 TO 1/2 UNIT
  4. INSULIN [Concomitant]
     Active Substance: INSULIN NOS
     Dosage: DOSE:4 UNIT(S)
     Route: 058

REACTIONS (3)
  - Hypoglycaemia [Unknown]
  - Blood glucose increased [Unknown]
  - Blood glucose decreased [Unknown]

NARRATIVE: CASE EVENT DATE: 201509
